FAERS Safety Report 16310149 (Version 4)
Quarter: 2019Q4

REPORT INFORMATION
  Report Type: Spontaneous
  Country: US (occurrence: US)
  Receive Date: 20190514
  Receipt Date: 20191113
  Transmission Date: 20200122
  Serious: Yes (Other)
  Sender: FDA-Public Use
  Company Number: US-ASTRAZENECA-2019SE68104

PATIENT
  Age: 65 Year
  Sex: Female
  Weight: 88.9 kg

DRUGS (24)
  1. METOLAZONE. [Concomitant]
     Active Substance: METOLAZONE
     Route: 065
  2. LOVAZA [Concomitant]
     Active Substance: OMEGA-3-ACID ETHYL ESTERS
  3. NAPROXEN. [Concomitant]
     Active Substance: NAPROXEN
  4. RANITIDINE. [Concomitant]
     Active Substance: RANITIDINE
  5. LORATADINE. [Concomitant]
     Active Substance: LORATADINE
  6. FLUVIRIN NOS [Concomitant]
     Active Substance: INFLUENZA VIRUS VACCINE
     Route: 065
  7. NASONEX [Concomitant]
     Active Substance: MOMETASONE FUROATE
  8. MECLIZINE [Concomitant]
     Active Substance: MECLIZINE HYDROCHLORIDE
  9. ALLOPURINOL. [Concomitant]
     Active Substance: ALLOPURINOL
  10. PROAIR HFA [Concomitant]
     Active Substance: ALBUTEROL SULFATE
  11. SERTRALINE [Concomitant]
     Active Substance: SERTRALINE HYDROCHLORIDE
  12. TIZANIDINE. [Concomitant]
     Active Substance: TIZANIDINE
     Route: 065
  13. ULORIC [Concomitant]
     Active Substance: FEBUXOSTAT
  14. AMOXICILLIN. [Concomitant]
     Active Substance: AMOXICILLIN
  15. FUROSEMIDE. [Concomitant]
     Active Substance: FUROSEMIDE
     Route: 065
  16. NAPROXEN. [Concomitant]
     Active Substance: NAPROXEN
     Route: 065
  17. TOPROL XL [Concomitant]
     Active Substance: METOPROLOL SUCCINATE
  18. FUROSEMIDE. [Concomitant]
     Active Substance: FUROSEMIDE
  19. CEFUROXIME. [Concomitant]
     Active Substance: CEFUROXIME
  20. NEXIUM [Suspect]
     Active Substance: ESOMEPRAZOLE MAGNESIUM
     Indication: DYSPEPSIA
     Route: 048
     Dates: start: 2007, end: 2016
  21. NEXIUM [Suspect]
     Active Substance: ESOMEPRAZOLE MAGNESIUM
     Indication: DYSPEPSIA
     Route: 048
     Dates: start: 2001, end: 20150629
  22. ROLAIDS [Concomitant]
     Active Substance: CALCIUM CARBONATE\MAGNESIUM HYDROXIDE
     Route: 065
  23. METOPROLOL SUCCINATE. [Concomitant]
     Active Substance: METOPROLOL SUCCINATE
  24. DESONIDE. [Concomitant]
     Active Substance: DESONIDE

REACTIONS (3)
  - Renal failure [Unknown]
  - Chronic kidney disease [Not Recovered/Not Resolved]
  - Acute kidney injury [Unknown]

NARRATIVE: CASE EVENT DATE: 2016
